FAERS Safety Report 15081368 (Version 2)
Quarter: 2018Q4

REPORT INFORMATION
  Report Type: Spontaneous
  Country: ES (occurrence: ES)
  Receive Date: 20180628
  Receipt Date: 20181019
  Transmission Date: 20190204
  Serious: Yes (Other)
  Sender: FDA-Public Use
  Company Number: ES-LUPIN PHARMACEUTICALS INC.-2018-04689

PATIENT
  Age: 43 Year
  Sex: Male

DRUGS (1)
  1. SIMVASTATIN. [Suspect]
     Active Substance: SIMVASTATIN
     Indication: PRODUCT USED FOR UNKNOWN INDICATION
     Dosage: 40 MG, QD
     Route: 065

REACTIONS (4)
  - Myalgia [Recovering/Resolving]
  - Fatigue [Unknown]
  - Blood creatine phosphokinase increased [Recovering/Resolving]
  - Unmasking of previously unidentified disease [Unknown]
